FAERS Safety Report 6314648-0 (Version None)
Quarter: 2009Q3

REPORT INFORMATION
  Report Type: 
  Country: None (occurrence: None)
  Receive Date: 20090817
  Receipt Date: 20090804
  Transmission Date: 20100115
  Serious: Yes (Hospitalization)
  Sender: FDA-Public Use
  Company Number: ADR12882009

PATIENT
  Age: 19 Year
  Sex: Female

DRUGS (2)
  1. SERTRALINE HCL [Suspect]
     Indication: DEPRESSION
     Dosage: 500 MG ORAL
     Route: 048
     Dates: start: 20090501
  2. TRAZODONE HYDROCHLORIDE [Concomitant]
     Dosage: 2000MG

REACTIONS (5)
  - FATIGUE [None]
  - HYPOTENSION [None]
  - LETHARGY [None]
  - OVERDOSE [None]
  - SOMNOLENCE [None]
